FAERS Safety Report 12438515 (Version 1)
Quarter: 2016Q2

REPORT INFORMATION
  Report Type: Spontaneous
  Country: US (occurrence: US)
  Receive Date: 20160606
  Receipt Date: 20160606
  Transmission Date: 20160815
  Serious: No
  Sender: FDA-Public Use
  Company Number: US-JAZZ-JPI-P-030789

PATIENT
  Sex: Female

DRUGS (1)
  1. XYREM [Suspect]
     Active Substance: SODIUM OXYBATE
     Indication: APNOEA
     Route: 048
     Dates: start: 20060202

REACTIONS (3)
  - Pollakiuria [Recovering/Resolving]
  - Sudden onset of sleep [Not Recovered/Not Resolved]
  - Cystitis interstitial [Recovering/Resolving]
